FAERS Safety Report 13321448 (Version 1)
Quarter: 2017Q1

REPORT INFORMATION
  Report Type: Spontaneous
  Country: US (occurrence: US)
  Receive Date: 20170310
  Receipt Date: 20170310
  Transmission Date: 20170428
  Serious: No
  Sender: FDA-Public Use
  Company Number: None

PATIENT
  Age: 77 Year

DRUGS (8)
  1. MELOXICAM. [Concomitant]
     Active Substance: MELOXICAM
  2. ASA [Concomitant]
     Active Substance: ASPIRIN
  3. SIMVASTATIN. [Concomitant]
     Active Substance: SIMVASTATIN
  4. TRIAMTERENE. [Concomitant]
     Active Substance: TRIAMTERENE
  5. LINZESS [Suspect]
     Active Substance: LINACLOTIDE
     Indication: IRRITABLE BOWEL SYNDROME
     Dosage: ?          OTHER STRENGTH:MCG;QUANTITY:1 CAPSULE(S);?
     Route: 048
  6. LINZESS [Suspect]
     Active Substance: LINACLOTIDE
     Indication: CONSTIPATION
     Dosage: ?          OTHER STRENGTH:MCG;QUANTITY:1 CAPSULE(S);?
     Route: 048
  7. GABAPENTIN. [Concomitant]
     Active Substance: GABAPENTIN
  8. VITAMIN D [Concomitant]
     Active Substance: CHOLECALCIFEROL

REACTIONS (3)
  - Vomiting [None]
  - Anal incontinence [None]
  - Diarrhoea [None]

NARRATIVE: CASE EVENT DATE: 20170309
